FAERS Safety Report 5328843-0 (Version None)
Quarter: 2007Q2

REPORT INFORMATION
  Report Type: 
  Country: None (occurrence: None)
  Receive Date: 20070518
  Receipt Date: 20070509
  Transmission Date: 20071010
  Serious: Yes (Hospitalization, Other)
  Sender: FDA-Public Use
  Company Number: GB-ELI_LILLY_AND_COMPANY-GB200705002592

PATIENT
  Age: 41 Year
  Sex: Male

DRUGS (1)
  1. CEFUROXIME [Suspect]
     Indication: BACTERIAL INFECTION
     Dosage: UNK, UNK

REACTIONS (4)
  - HEADACHE [None]
  - JUGULAR VEIN THROMBOSIS [None]
  - PYREXIA [None]
  - TENDERNESS [None]
